FAERS Safety Report 12844052 (Version 1)
Quarter: 2016Q4

REPORT INFORMATION
  Report Type: Spontaneous
  Country: US (occurrence: US)
  Receive Date: 20161012
  Receipt Date: 20161012
  Transmission Date: 20170207
  Serious: Yes (Hospitalization, Other)
  Sender: FDA-Public Use
  Company Number: None

PATIENT
  Age: 1 Year
  Sex: Male
  Weight: 10.35 kg

DRUGS (1)
  1. BABY TEETHING (HYLAND HOMEOPATHIC) [Suspect]
     Active Substance: HOMEOPATHICS
     Indication: TEETHING
     Dosage: ?          QUANTITY:2 TABLET(S);?
     Route: 048
     Dates: start: 20160905, end: 20160905

REACTIONS (6)
  - Unresponsive to stimuli [None]
  - Floppy infant [None]
  - Muscle twitching [None]
  - Cyanosis [None]
  - Respiratory arrest [None]
  - Febrile convulsion [None]

NARRATIVE: CASE EVENT DATE: 20160905
